FAERS Safety Report 17909943 (Version 3)
Quarter: 2021Q2

REPORT INFORMATION
  Report Type: Spontaneous
  Country: US (occurrence: US)
  Receive Date: 20200617
  Receipt Date: 20210629
  Transmission Date: 20210717
  Serious: Yes (Hospitalization)
  Sender: FDA-Public Use
  Company Number: US-TEVA-2020-US-1510421

PATIENT
  Age: 30 Year
  Sex: Male

DRUGS (8)
  1. PHENYTOIN. [Interacting]
     Active Substance: PHENYTOIN
     Indication: STATUS EPILEPTICUS
     Dosage: DOSE WAS UPTITRATED
     Route: 048
  2. PENTOBARBITAL. [Suspect]
     Active Substance: PENTOBARBITAL
     Indication: STATUS EPILEPTICUS
     Route: 065
  3. OXCARBAZEPINE. [Suspect]
     Active Substance: OXCARBAZEPINE
     Indication: STATUS EPILEPTICUS
     Dosage: DOSE WAS UPTITRATED
     Route: 048
  4. PROPOFOL. [Suspect]
     Active Substance: PROPOFOL
     Indication: STATUS EPILEPTICUS
     Route: 065
  5. CLOBAZAM. [Suspect]
     Active Substance: CLOBAZAM
     Indication: STATUS EPILEPTICUS
     Dosage: DOSE WAS UPTITRATED
     Route: 048
  6. LIDOCAINE. [Interacting]
     Active Substance: LIDOCAINE
     Indication: STATUS EPILEPTICUS
     Route: 040
  7. KETAMINE [Suspect]
     Active Substance: KETAMINE
     Indication: STATUS EPILEPTICUS
     Route: 065
  8. LIDOCAINE. [Interacting]
     Active Substance: LIDOCAINE
     Indication: STATUS EPILEPTICUS
     Route: 050

REACTIONS (3)
  - Product dose omission issue [Unknown]
  - Drug interaction [Unknown]
  - Drug ineffective [Unknown]
